FAERS Safety Report 24545905 (Version 1)
Quarter: 2024Q4

REPORT INFORMATION
  Report Type: Spontaneous
  Country: FR (occurrence: FR)
  Receive Date: 20241024
  Receipt Date: 20241024
  Transmission Date: 20250115
  Serious: Yes (Other)
  Sender: MYLAN
  Company Number: None

PATIENT
  Age: 4 Year
  Sex: Female
  Weight: 12 kg

DRUGS (1)
  1. AMLODIPINE BESYLATE [Suspect]
     Active Substance: AMLODIPINE BESYLATE
     Indication: Hypertension
     Dosage: 5 MILLIGRAM, TOTAL
     Route: 048
     Dates: start: 20240921, end: 20240921

REACTIONS (2)
  - Hypotension [Recovering/Resolving]
  - Wrong dose [Recovered/Resolved]

NARRATIVE: CASE EVENT DATE: 20240921
